FAERS Safety Report 5899266-0 (Version None)
Quarter: 2008Q3

REPORT INFORMATION
  Report Type: 
  Country: None (occurrence: None)
  Receive Date: 20080828
  Receipt Date: 20071212
  Transmission Date: 20090109
  Serious: Yes (Hospitalization)
  Sender: FDA-Public Use
  Company Number: CIP07002607

PATIENT
  Sex: Male

DRUGS (1)
  1. ASACOL [Suspect]
     Indication: COLITIS ULCERATIVE
     Dosage: ORAL
     Route: 048

REACTIONS (2)
  - PAIN [None]
  - PANCREATITIS [None]
